FAERS Safety Report 10038690 (Version 4)
Quarter: 2014Q4

REPORT INFORMATION
  Report Type: Report from Study
  Country: US (occurrence: US)
  Receive Date: 20140326
  Receipt Date: 20141217
  Transmission Date: 20150528
  Serious: Yes (Other)
  Sender: FDA-Public Use
  Company Number: US-ALEXION PHARMACEUTICALS INC.-A201102239

PATIENT

DRUGS (4)
  1. COMPAZINE [Concomitant]
     Active Substance: PROCHLORPERAZINE MALEATE
     Indication: ANTIEMETIC SUPPORTIVE CARE
     Dosage: UNK, PRN
     Route: 065
     Dates: start: 20110413
  2. SOLIRIS [Suspect]
     Active Substance: ECULIZUMAB
     Dosage: 900 MG, Q 11 DAYS
     Route: 042
     Dates: start: 20110215
  3. SOLIRIS [Suspect]
     Active Substance: ECULIZUMAB
     Indication: PAROXYSMAL NOCTURNAL HAEMOGLOBINURIA
     Dosage: UNK
     Route: 042
     Dates: start: 20070807, end: 20080312
  4. SOLIRIS [Suspect]
     Active Substance: ECULIZUMAB
     Dosage: 900 MG, Q10-11 DAYS
     Route: 042
     Dates: start: 20120316

REACTIONS (9)
  - Inappropriate schedule of drug administration [Unknown]
  - Fatigue [Unknown]
  - Arthroscopic surgery [Unknown]
  - Haemoglobinuria [Unknown]
  - Malaise [Unknown]
  - Gallbladder disorder [Unknown]
  - Cholecystitis [Unknown]
  - Haemolysis [Unknown]
  - Abdominal pain [Unknown]

NARRATIVE: CASE EVENT DATE: 20111110
